FAERS Safety Report 16304590 (Version 1)
Quarter: 2019Q2

REPORT INFORMATION
  Report Type: Spontaneous
  Country: US (occurrence: US)
  Receive Date: 20190513
  Receipt Date: 20190513
  Transmission Date: 20190711
  Serious: No
  Sender: FDA-Public Use
  Company Number: US-BAYER-2019-094570

PATIENT
  Age: 61 Year
  Sex: Female

DRUGS (1)
  1. ESTRADIOL. [Suspect]
     Active Substance: ESTRADIOL
     Dosage: UNK
     Route: 062
     Dates: start: 201805

REACTIONS (2)
  - Application site pruritus [Recovering/Resolving]
  - Product adhesion issue [None]

NARRATIVE: CASE EVENT DATE: 201904
